FAERS Safety Report 6968424-6 (Version None)
Quarter: 2010Q3

REPORT INFORMATION
  Report Type: 
  Country: None (occurrence: None)
  Receive Date: 20100907
  Receipt Date: 20100827
  Transmission Date: 20110219
  Serious: Yes (Disabling)
  Sender: FDA-Public Use
  Company Number: FR-BAXTER-2010BH022469

PATIENT
  Age: 69 Year
  Sex: Female

DRUGS (9)
  1. GAMMAGARD LIQUID [Suspect]
     Indication: INCLUSION BODY MYOSITIS
     Route: 065
     Dates: start: 20100118, end: 20100122
  2. GAMMAGARD LIQUID [Suspect]
     Indication: OFF LABEL USE
     Route: 065
     Dates: start: 20100118, end: 20100122
  3. LEVOTHYROXINE SODIUM [Concomitant]
     Indication: HYPOTHYROIDISM
  4. POLARAMINE [Concomitant]
     Indication: PREMEDICATION
  5. ATARAX [Concomitant]
     Indication: PREMEDICATION
  6. SOLU-MEDROL [Concomitant]
     Indication: PREMEDICATION
  7. KLIPAL [Concomitant]
  8. LODINE [Concomitant]
  9. OMEPRAZOLE [Concomitant]

REACTIONS (1)
  - DERMATITIS BULLOUS [None]
